FAERS Safety Report 25385380 (Version 2)
Quarter: 2025Q2

REPORT INFORMATION
  Report Type: Spontaneous
  Country: TW (occurrence: TW)
  Receive Date: 20250602
  Receipt Date: 20250604
  Transmission Date: 20250717
  Serious: Yes (Other)
  Sender: MERCK SHARP & DOHME LLC
  Company Number: TW-009507513-2289548

PATIENT
  Age: 72 Year
  Sex: Male
  Weight: 60 kg

DRUGS (2)
  1. SUGAMMADEX SODIUM [Suspect]
     Active Substance: SUGAMMADEX SODIUM
  2. ROCURONIUM [Suspect]
     Active Substance: ROCURONIUM BROMIDE

REACTIONS (8)
  - Mini-tracheostomy [Unknown]
  - Respiratory disorder [Recovered/Resolved]
  - Nasal disorder [Recovered/Resolved]
  - Bruxism [Unknown]
  - Endotracheal intubation complication [Unknown]
  - Post procedural complication [Unknown]
  - Procedural nausea [Unknown]
  - Procedural vomiting [Unknown]
